FAERS Safety Report 7971306-4 (Version None)
Quarter: 2011Q4

REPORT INFORMATION
  Report Type: 
  Country: None (occurrence: None)
  Receive Date: 20111212
  Receipt Date: 20111130
  Transmission Date: 20120403
  Serious: Yes (Other)
  Sender: FDA-Public Use
  Company Number: PHHY2011BE91547

PATIENT
  Sex: Male

DRUGS (3)
  1. XANAX [Concomitant]
     Dosage: 1 DF, AT 10:00 PM
     Dates: start: 20110926, end: 20111107
  2. CLOZAPINE [Suspect]
     Dosage: 1/4 TABLET PER DAY
     Dates: start: 20111116
  3. CLOZAPINE [Suspect]
     Dosage: 0.625 MG, TWICE DAILY AT 08:00 AM AND 02:00 PM
     Route: 048
     Dates: start: 20110926

REACTIONS (4)
  - WEIGHT INCREASED [None]
  - FATIGUE [None]
  - MOTOR DYSFUNCTION [None]
  - BINGE EATING [None]
